FAERS Safety Report 9238084 (Version 1)
Quarter: 2013Q2

REPORT INFORMATION
  Report Type: Spontaneous
  Country: US (occurrence: None)
  Receive Date: 20130415
  Receipt Date: 20130415
  Transmission Date: 20140414
  Serious: Yes (Hospitalization)
  Sender: FDA-Public Use
  Company Number: ALK-2013-001462

PATIENT
  Age: 46 Year
  Sex: Female
  Weight: 78 kg

DRUGS (2)
  1. VIVITROL (VIVITROL_NDA) INJECTION, 380MG [Suspect]
     Indication: DRUG DEPENDENCE
     Dosage: QMO?
     Route: 030
  2. METHADONE (METHADONE) [Concomitant]

REACTIONS (6)
  - Blood potassium decreased [None]
  - Blood glucose increased [None]
  - Malaise [None]
  - Aphagia [None]
  - Incontinence [None]
  - Tooth extraction [None]
